FAERS Safety Report 5599081-1 (Version None)
Quarter: 2008Q1

REPORT INFORMATION
  Report Type: 
  Country: None (occurrence: None)
  Receive Date: 20080117
  Receipt Date: 20080103
  Transmission Date: 20080703
  Serious: No
  Sender: FDA-Public Use
  Company Number: US020853

PATIENT
  Age: 48 Year
  Sex: Female
  Weight: 80.7403 kg

DRUGS (12)
  1. FENTORA [Suspect]
     Indication: BACK PAIN
     Dosage: 400 UG UP TO FIVE TIMES DAILY BUCCAL
     Route: 002
     Dates: start: 20070201, end: 20070301
  2. FENTORA [Suspect]
     Indication: MIGRAINE
     Dosage: 400 UG UP TO FIVE TIMES DAILY BUCCAL
     Route: 002
     Dates: start: 20070201, end: 20070301
  3. FENTORA [Suspect]
     Indication: BACK PAIN
     Dosage: 600 UG BUCCAL
     Route: 002
     Dates: start: 20070301
  4. FENTORA [Suspect]
     Indication: MIGRAINE
     Dosage: 600 UG BUCCAL
     Route: 002
     Dates: start: 20070301
  5. FENTORA [Suspect]
     Indication: BACK PAIN
     Dosage: 200 UG BUCCAL
     Route: 002
     Dates: end: 20070724
  6. FENTORA [Suspect]
     Indication: MIGRAINE
     Dosage: 200 UG BUCCAL
     Route: 002
     Dates: end: 20070724
  7. FENTORA [Suspect]
     Indication: BACK PAIN
     Dosage: 400 UG UP TO FIVE TIMES DAILY BUCCAL
     Route: 002
     Dates: start: 20070725
  8. FENTORA [Suspect]
     Indication: MIGRAINE
     Dosage: 400 UG UP TO FIVE TIMES DAILY BUCCAL
     Route: 002
     Dates: start: 20070725
  9. OXYCONTIN [Concomitant]
  10. PREVACID [Concomitant]
  11. BISOPROLOL FUMARATE AND HYDROCHLOROTHIAZIDE [Concomitant]
  12. ALLEGRA [Concomitant]

REACTIONS (11)
  - APPLICATION SITE PAIN [None]
  - APPLICATION SITE ULCER [None]
  - DRUG ADMINISTRATION ERROR [None]
  - DRUG HYPERSENSITIVITY [None]
  - FEELING ABNORMAL [None]
  - GINGIVAL ULCERATION [None]
  - IDIOSYNCRATIC DRUG REACTION [None]
  - MEDICATION ERROR [None]
  - SEDATION [None]
  - TONGUE HAEMORRHAGE [None]
  - TONGUE ULCERATION [None]
